FAERS Safety Report 11688274 (Version 6)
Quarter: 2016Q4

REPORT INFORMATION
  Report Type: Report from Study
  Country: US (occurrence: US)
  Receive Date: 20151030
  Receipt Date: 20161021
  Transmission Date: 20170206
  Serious: Yes (Other)
  Sender: FDA-Public Use
  Company Number: PHHY2015US070962

PATIENT
  Age: 52 Year
  Sex: Male

DRUGS (1)
  1. GILENYA [Suspect]
     Active Substance: FINGOLIMOD HYDROCHLORIDE
     Indication: MULTIPLE SCLEROSIS
     Dosage: UNK UNK, QD
     Route: 048

REACTIONS (11)
  - Liver function test increased [Recovered/Resolved]
  - White blood cell count decreased [Unknown]
  - Tremor [Unknown]
  - Aspartate aminotransferase increased [Unknown]
  - Myocardial ischaemia [Unknown]
  - Pain in extremity [Recovered/Resolved]
  - Alanine aminotransferase increased [Unknown]
  - Hypoaesthesia [Recovered/Resolved]
  - Disturbance in attention [Unknown]
  - Anxiety [Unknown]
  - Hypoaesthesia oral [Unknown]

NARRATIVE: CASE EVENT DATE: 20150513
